FAERS Safety Report 4627782-8 (Version None)
Quarter: 2005Q2

REPORT INFORMATION
  Report Type: 
  Country: None (occurrence: None)
  Receive Date: 20050401
  Receipt Date: 20050401
  Transmission Date: 20051028
  Serious: No
  Sender: FDA-Public Use
  Company Number: None

PATIENT
  Age: 34 Year
  Sex: Female

DRUGS (1)
  1. COLISTIN SULFATE [Suspect]
     Indication: PSEUDOMONAL SEPSIS
     Dosage: 150MG Q8HOURS INTRAVENOUS
     Route: 042
     Dates: start: 20040319, end: 20040402

REACTIONS (1)
  - RENAL IMPAIRMENT [None]
